FAERS Safety Report 9869921 (Version 4)
Quarter: 2014Q2

REPORT INFORMATION
  Report Type: Spontaneous
  Country: GB (occurrence: None)
  Receive Date: 20140131
  Receipt Date: 20140516
  Transmission Date: 20141212
  Serious: Yes (Life-Threatening, Hospitalization, Other)
  Sender: FDA-Public Use
  Company Number: AUR-APL-2014-00670

PATIENT
  Age: 48 Year
  Sex: Male

DRUGS (5)
  1. OLANZAPINE [Suspect]
     Indication: PRODUCT USED FOR UNKNOWN INDICATION
     Route: 048
     Dates: start: 20140106, end: 20140106
  2. CLOZARIL (CLOZAPINE) [Suspect]
     Indication: SCHIZOAFFECTIVE DISORDER
     Route: 048
     Dates: start: 20010701, end: 20140103
  3. LITHIUM (LITHIUM) [Concomitant]
  4. LORAZEPAM (LORAZEPAM) [Concomitant]
  5. HALOPERIDOL [Suspect]
     Indication: AGITATION
     Dosage: REPORTED AS 5 TO 10 MG UP TO MAXIMUM TO 30 MG, ORAL
     Dates: start: 20131220

REACTIONS (6)
  - Neuroleptic malignant syndrome [None]
  - Neutrophil count increased [None]
  - White blood cell count increased [None]
  - Dysphagia [None]
  - Agitation [None]
  - Dysphagia [None]
